FAERS Safety Report 7290224-0 (Version None)
Quarter: 2011Q1

REPORT INFORMATION
  Report Type: 
  Country: None (occurrence: None)
  Receive Date: 20110214
  Receipt Date: 20110204
  Transmission Date: 20110831
  Serious: Yes (Life-Threatening, Hospitalization, Other)
  Sender: FDA-Public Use
  Company Number: PHHY2011BR10372

PATIENT
  Sex: Female

DRUGS (6)
  1. GLYBURIDE [Concomitant]
     Dosage: ONE TABLET  PER DAY
     Route: 048
     Dates: start: 20070101
  2. AAS [Concomitant]
     Dosage: ONE TABLET A DAY
     Dates: start: 20070101
  3. AMLODIPINE BESYLATE [Concomitant]
     Dosage: TWO TABLET A DAY,
     Route: 048
  4. METFORMIN HYDROCHLORIDE [Concomitant]
     Dosage: 850 MG, TWO TABLETS A DAY
     Dates: start: 20090101
  5. DIOVAN [Suspect]
     Indication: HYPERTENSION
     Dosage: 80 MG, ONE PER DAY
     Route: 048
     Dates: start: 20100101
  6. CARVEDILOL [Concomitant]
     Dosage: ONE TABLET,  DAILY
     Route: 048

REACTIONS (4)
  - COMA [None]
  - BACTERAEMIA [None]
  - CARDIAC DISORDER [None]
  - HYPERTENSION [None]
